FAERS Safety Report 6043504-0 (Version None)
Quarter: 2009Q1

REPORT INFORMATION
  Report Type: 
  Country: None (occurrence: None)
  Receive Date: 20090115
  Receipt Date: 20080106
  Transmission Date: 20090719
  Serious: Yes (Hospitalization)
  Sender: FDA-Public Use
  Company Number: 2008-181894-NL

PATIENT
  Age: 34 Year
  Sex: Female

DRUGS (10)
  1. FOLLITROPIN BETA [Suspect]
     Indication: INFERTILITY FEMALE
     Dosage: 150 IU/75 IU, INTRAMUSCULAR
     Route: 030
     Dates: start: 20070602, end: 20070606
  2. FOLLITROPIN BETA [Suspect]
     Indication: INFERTILITY FEMALE
     Dosage: 150 IU/75 IU, INTRAMUSCULAR
     Route: 030
     Dates: start: 20070607, end: 20070607
  3. CLOMIFENE CITRATE [Concomitant]
  4. CETRORELIX ACETATE [Concomitant]
  5. MENOTROPINS [Concomitant]
  6. CHORIONIC GONADOTROPIN [Concomitant]
  7. ESTRADIOL BENZOATE [Concomitant]
  8. HYDROXYPROGESTERONE CAPROATE [Concomitant]
  9. PROGESTERONE [Concomitant]
  10. ESTRADIOL [Concomitant]

REACTIONS (6)
  - CAESAREAN SECTION [None]
  - DRUG EXPOSURE BEFORE PREGNANCY [None]
  - GESTATIONAL DIABETES [None]
  - PREMATURE LABOUR [None]
  - THREATENED LABOUR [None]
  - TWIN PREGNANCY [None]
